FAERS Safety Report 8359124-9 (Version None)
Quarter: 2012Q2

REPORT INFORMATION
  Report Type: 
  Country: None (occurrence: None)
  Receive Date: 20120515
  Receipt Date: 20120509
  Transmission Date: 20120825
  Serious: Yes (Hospitalization)
  Sender: FDA-Public Use
  Company Number: DE-AMGEN-DEUSP2012015305

PATIENT
  Sex: Male

DRUGS (14)
  1. RITUXIMAB [Suspect]
     Indication: B-CELL LYMPHOMA
     Dosage: 750 MG, UNK
     Route: 042
     Dates: start: 20120207, end: 20120207
  2. RAMIPRIL [Concomitant]
     Dosage: 5 MG, UNK
     Route: 048
     Dates: start: 20120123
  3. SIMVASTATIN [Concomitant]
     Indication: HYPERLIPIDAEMIA
     Dosage: 40 MG, UNK
     Route: 048
     Dates: start: 20120123
  4. DOXORUBICIN HCL [Suspect]
     Indication: B-CELL LYMPHOMA
     Dosage: 100 MG, UNK
     Route: 042
     Dates: start: 20120208, end: 20120208
  5. SODIUM BICARBONATE [Concomitant]
     Dosage: 1 G, UNK
     Route: 048
  6. CYCLOPHOSPHAMIDE [Suspect]
     Indication: B-CELL LYMPHOMA
     Dosage: 1500 MG, UNK
     Route: 042
     Dates: start: 20120208, end: 20120208
  7. TRIMETHOPRIM [Concomitant]
     Indication: ANTIBIOTIC THERAPY
     Dosage: 960 MG, 2 TIMES/WK
     Route: 048
  8. VINCRISTINE [Suspect]
     Indication: B-CELL LYMPHOMA
     Dosage: 2 MG, QD
     Route: 042
     Dates: start: 20120208, end: 20120208
  9. NEULASTA [Suspect]
     Indication: B-CELL LYMPHOMA
     Dosage: 6 MG, UNK
     Route: 058
     Dates: start: 20120211, end: 20120211
  10. PREDNISOLONE [Suspect]
     Indication: B-CELL LYMPHOMA
     Dosage: 100 MG, UNK
     Route: 048
     Dates: start: 20120208, end: 20120212
  11. ALLOPURINOL [Concomitant]
     Indication: BLOOD URIC ACID DECREASED
  12. LISINOPRIL [Concomitant]
     Indication: HYPERTENSION
     Dosage: 5 MG, UNK
     Route: 048
     Dates: start: 20120123
  13. GRANISETRON [Concomitant]
     Indication: VOMITING
     Dosage: 3 MG, UNK
     Route: 042
     Dates: start: 20120208
  14. HYDROCHLOROTHIAZIDE [Concomitant]
     Indication: DIURETIC THERAPY
     Dosage: 25 MG, QD
     Route: 048
     Dates: start: 20120123

REACTIONS (2)
  - INFECTION [None]
  - BRONCHOPNEUMONIA [None]
